FAERS Safety Report 7997401-1 (Version None)
Quarter: 2011Q4

REPORT INFORMATION
  Report Type: 
  Country: None (occurrence: None)
  Receive Date: 20111221
  Receipt Date: 20111215
  Transmission Date: 20120403
  Serious: Yes (Hospitalization)
  Sender: FDA-Public Use
  Company Number: US-US-EMD SERONO, INC.-7077624

PATIENT
  Sex: Female
  Weight: 106 kg

DRUGS (2)
  1. NAPROSEN [Concomitant]
     Indication: PREMEDICATION
  2. REBIF [Suspect]
     Indication: MULTIPLE SCLEROSIS
     Route: 058
     Dates: start: 20100923

REACTIONS (9)
  - PAIN [None]
  - HEADACHE [None]
  - SPEECH DISORDER [None]
  - SKIN DISCOLOURATION [None]
  - MUSCLE SPASMS [None]
  - ERYTHEMA [None]
  - FEELING HOT [None]
  - INJECTION SITE ERYTHEMA [None]
  - LOCAL SWELLING [None]
